FAERS Safety Report 13716745 (Version 1)
Quarter: 2017Q3

REPORT INFORMATION
  Report Type: Spontaneous
  Country: US (occurrence: US)
  Receive Date: 20170705
  Receipt Date: 20170705
  Transmission Date: 20171127
  Serious: No
  Sender: FDA-Public Use
  Company Number: US-TEVA-698825USA

PATIENT
  Sex: Female
  Weight: 76.27 kg

DRUGS (5)
  1. 81 ASPIRIN [Concomitant]
  2. VITAMIN D [Concomitant]
     Active Substance: CHOLECALCIFEROL
     Dosage: 2000
  3. ADVIL [Concomitant]
     Active Substance: IBUPROFEN
  4. BUPROPION EXTENDED RELEASE XL [Suspect]
     Active Substance: BUPROPION
     Indication: FIBROMYALGIA
     Dosage: 150 MILLIGRAM DAILY;
     Route: 065
     Dates: start: 20151219, end: 20160518
  5. BUPROPION EXTENDED RELEASE XL [Suspect]
     Active Substance: BUPROPION
     Indication: PAIN

REACTIONS (13)
  - Product substitution issue [Unknown]
  - Product size issue [Unknown]
  - Malaise [Recovered/Resolved]
  - Pain [Recovered/Resolved]
  - Product use in unapproved indication [Unknown]
  - Drug effect decreased [Unknown]
  - Dysstasia [Recovered/Resolved]
  - Headache [Recovered/Resolved]
  - Vomiting [Unknown]
  - Movement disorder [Unknown]
  - Asthenia [Unknown]
  - Alopecia [Unknown]
  - Abdominal discomfort [Recovered/Resolved]
